FAERS Safety Report 12530581 (Version 3)
Quarter: 2016Q4

REPORT INFORMATION
  Report Type: Spontaneous
  Country: US (occurrence: US)
  Receive Date: 20160706
  Receipt Date: 20161115
  Transmission Date: 20170207
  Serious: No
  Sender: FDA-Public Use
  Company Number: US-GLAXOSMITHKLINE-US2016090262

PATIENT
  Age: 78 Year
  Sex: Male

DRUGS (4)
  1. SYNTHROID [Concomitant]
     Active Substance: LEVOTHYROXINE SODIUM
  2. BROVANA [Concomitant]
     Active Substance: ARFORMOTEROL TARTRATE
  3. DILTIAZEM. [Concomitant]
     Active Substance: DILTIAZEM
  4. FLOVENT [Suspect]
     Active Substance: FLUTICASONE PROPIONATE
     Indication: CHRONIC OBSTRUCTIVE PULMONARY DISEASE
     Dosage: 1 PUFF(S), QD
     Route: 055
     Dates: start: 201602

REACTIONS (3)
  - Underdose [Unknown]
  - Tongue disorder [Unknown]
  - Oral disorder [Unknown]

NARRATIVE: CASE EVENT DATE: 201604
